FAERS Safety Report 11616439 (Version 3)
Quarter: 2015Q4

REPORT INFORMATION
  Report Type: Spontaneous
  Country: ZA (occurrence: ZA)
  Receive Date: 20151009
  Receipt Date: 20151116
  Transmission Date: 20160304
  Serious: Yes (Other)
  Sender: FDA-Public Use
  Company Number: ALCN2015ZA006281

PATIENT
  Age: 64 Year
  Sex: Female

DRUGS (2)
  1. AZARGA [Suspect]
     Active Substance: BRINZOLAMIDE\TIMOLOL MALEATE
     Indication: PRODUCT USED FOR UNKNOWN INDICATION
     Dosage: UNK
     Route: 047
  2. VECTORYL [Concomitant]
     Indication: PRODUCT USED FOR UNKNOWN INDICATION
     Dosage: UNK
     Route: 065

REACTIONS (7)
  - Chest discomfort [Recovered/Resolved]
  - Fibroadenoma of breast [Unknown]
  - Dyspnoea [Recovered/Resolved]
  - Jaundice [Recovered/Resolved]
  - Liver function test abnormal [Recovered/Resolved]
  - Myalgia intercostal [Recovered/Resolved]
  - Chest pain [Recovered/Resolved]

NARRATIVE: CASE EVENT DATE: 20150826
